FAERS Safety Report 9271019 (Version 1)
Quarter: 2013Q2

REPORT INFORMATION
  Report Type: Spontaneous
  Country: US (occurrence: US)
  Receive Date: 20130506
  Receipt Date: 20130506
  Transmission Date: 20140414
  Serious: Yes (Death)
  Sender: FDA-Public Use
  Company Number: US-JNJFOC-20130415725

PATIENT
  Age: 52 Year
  Sex: Female

DRUGS (2)
  1. INVEGA SUSTENNA [Suspect]
     Indication: PRODUCT USED FOR UNKNOWN INDICATION
     Dosage: INITIATION DOSES
     Route: 030
  2. INVEGA SUSTENNA [Suspect]
     Indication: PRODUCT USED FOR UNKNOWN INDICATION
     Dosage: INITIATION DOSES
     Route: 030

REACTIONS (3)
  - Cardiac arrest [Fatal]
  - Blood sodium decreased [Fatal]
  - Electrolyte depletion [Unknown]
